FAERS Safety Report 15611137 (Version 1)
Quarter: 2018Q4

REPORT INFORMATION
  Report Type: Spontaneous
  Country: US (occurrence: US)
  Receive Date: 20181113
  Receipt Date: 20181113
  Transmission Date: 20190205
  Serious: No
  Sender: FDA-Public Use
  Company Number: US-ROCHE-2113026

PATIENT
  Sex: Male

DRUGS (1)
  1. LUCENTIS [Suspect]
     Active Substance: RANIBIZUMAB
     Indication: MACULAR DEGENERATION
     Dosage: 0.5MG/0.05ML  ONGOING
     Route: 050
     Dates: start: 20180424

REACTIONS (3)
  - Foreign body sensation in eyes [Not Recovered/Not Resolved]
  - Foreign body sensation in eyes [Unknown]
  - Abnormal sensation in eye [Not Recovered/Not Resolved]
